FAERS Safety Report 15087928 (Version 2)
Quarter: 2018Q3

REPORT INFORMATION
  Report Type: Spontaneous
  Country: IN (occurrence: IN)
  Receive Date: 20180629
  Receipt Date: 20180717
  Transmission Date: 20181010
  Serious: Yes (Hospitalization, Other)
  Sender: FDA-Public Use
  Company Number: IN-ACCORD-068869

PATIENT
  Age: 18 Year
  Sex: Male

DRUGS (3)
  1. FOLINIC ACID [Suspect]
     Active Substance: LEUCOVORIN
     Indication: RECTOSIGMOID CANCER
     Dosage: TEN CYCLES EVERY 2 WEEKS
  2. IRINOTECAN [Suspect]
     Active Substance: IRINOTECAN
     Indication: RECTOSIGMOID CANCER
     Dosage: TEN CYCLES EVERY 2 WEEKS
  3. FLUOROURACIL. [Suspect]
     Active Substance: FLUOROURACIL
     Indication: RECTOSIGMOID CANCER
     Dosage: TEN CYCLES EVERY 2 WEEKS

REACTIONS (1)
  - Posterior reversible encephalopathy syndrome [Recovering/Resolving]
